FAERS Safety Report 9471611 (Version 1)
Quarter: 2013Q3

REPORT INFORMATION
  Report Type: Spontaneous
  Country: US (occurrence: US)
  Receive Date: 20130822
  Receipt Date: 20130822
  Transmission Date: 20140515
  Serious: Yes (Other)
  Sender: FDA-Public Use
  Company Number: US-BAXTER-2013BAX032704

PATIENT
  Sex: Female

DRUGS (2)
  1. GAMMAGARD LIQUID [Suspect]
     Indication: PRODUCT USED FOR UNKNOWN INDICATION
     Route: 042
     Dates: start: 1994
  2. GAMMAGARD LIQUID [Suspect]
     Route: 042

REACTIONS (4)
  - Infection [Recovered/Resolved]
  - Multimorbidity [Unknown]
  - Oedema peripheral [Unknown]
  - Skin discolouration [Unknown]
